FAERS Safety Report 19186007 (Version 1)
Quarter: 2021Q2

REPORT INFORMATION
  Report Type: Spontaneous
  Country: CA (occurrence: CA)
  Receive Date: 20210427
  Receipt Date: 20210427
  Transmission Date: 20210717
  Serious: Yes (Hospitalization, Other)
  Sender: FDA-Public Use
  Company Number: CA-TAKEDA-2021TUS024786

PATIENT
  Age: 50 Year
  Sex: Female

DRUGS (3)
  1. FIRAZYR [Suspect]
     Active Substance: ICATIBANT ACETATE
     Indication: HEREDITARY ANGIOEDEMA
     Dosage: UNKNOWN
     Route: 058
  2. FIRAZYR [Suspect]
     Active Substance: ICATIBANT ACETATE
     Indication: HEREDITARY ANGIOEDEMA
     Dosage: UNKNOWN
     Route: 058
  3. C 1 ESTERASE INHIBITOR [Concomitant]
     Indication: PRODUCT USED FOR UNKNOWN INDICATION
     Route: 065

REACTIONS (8)
  - Hereditary angioedema [Unknown]
  - Raynaud^s phenomenon [Unknown]
  - Pulmonary thrombosis [Unknown]
  - Back disorder [Unknown]
  - Colitis [Unknown]
  - Influenza [Unknown]
  - Pericarditis [Unknown]
  - Pulmonary embolism [Unknown]
